FAERS Safety Report 20193204 (Version 1)
Quarter: 2021Q4

REPORT INFORMATION
  Report Type: Spontaneous
  Country: US (occurrence: None)
  Receive Date: 20211215
  Receipt Date: 20211215
  Transmission Date: 20220304
  Serious: Yes (Other)
  Sender: FDA-Public Use
  Company Number: None

PATIENT
  Age: 46 Year
  Sex: Female
  Weight: 69.75 kg

DRUGS (8)
  1. CASIRIVIMAB\IMDEVIMAB [Suspect]
     Active Substance: CASIRIVIMAB\IMDEVIMAB
     Indication: COVID-19
     Dosage: OTHER FREQUENCY : ONE TIME;?
     Route: 042
     Dates: start: 20211128, end: 20211128
  2. VITAMIN C [Concomitant]
     Active Substance: ASCORBIC ACID
  3. OMEGA 3 [Concomitant]
     Active Substance: CAPSAICIN
  4. VITAMIN D3 [Concomitant]
     Active Substance: CHOLECALCIFEROL
  5. VITAMIN K [Concomitant]
  6. ZINC SULFATE [Concomitant]
  7. MELATONIN [Concomitant]
     Active Substance: MELATONIN
  8. QUERCETIN [Concomitant]
     Active Substance: QUERCETIN

REACTIONS (1)
  - Neuropathy peripheral [None]

NARRATIVE: CASE EVENT DATE: 20211128
